FAERS Safety Report 21551048 (Version 1)
Quarter: 2022Q4

REPORT INFORMATION
  Report Type: Spontaneous
  Country: US (occurrence: None)
  Receive Date: 20221102
  Receipt Date: 20221102
  Transmission Date: 20230113
  Serious: Yes (Death)
  Sender: FDA-Public Use
  Company Number: None

PATIENT
  Age: 80 Year
  Sex: Female
  Weight: 76.43 kg

DRUGS (15)
  1. IMATINIB MESYLATE [Suspect]
     Active Substance: IMATINIB MESYLATE
     Indication: Gastrointestinal stromal tumour
     Dosage: FREQUENCY : DAILY;?
     Route: 048
     Dates: start: 202107
  2. ASPIRIN [Concomitant]
     Active Substance: ASPIRIN
  3. BACLOFEN [Concomitant]
     Active Substance: BACLOFEN
  4. CARVEDILOL [Concomitant]
     Active Substance: CARVEDILOL
  5. CELECOXIB [Concomitant]
     Active Substance: CELECOXIB
  6. DICYCLOMINE [Concomitant]
     Active Substance: DICYCLOMINE HYDROCHLORIDE
  7. DONEPEZIL [Concomitant]
     Active Substance: DONEPEZIL
  8. FAMOTIDINE [Concomitant]
     Active Substance: FAMOTIDINE
  9. GABAPENTIN [Concomitant]
     Active Substance: GABAPENTIN
  10. LEVOTHYROXINE [Concomitant]
     Active Substance: LEVOTHYROXINE
  11. MELATONIN [Concomitant]
     Active Substance: MELATONIN
  12. MELOXICAM [Concomitant]
     Active Substance: MELOXICAM
  13. METFORMIN [Concomitant]
     Active Substance: METFORMIN HYDROCHLORIDE
  14. ONDANSETRON [Concomitant]
     Active Substance: ONDANSETRON
  15. SERTRALINE [Concomitant]
     Active Substance: SERTRALINE HYDROCHLORIDE

REACTIONS (1)
  - Death [None]

NARRATIVE: CASE EVENT DATE: 20221005
